FAERS Safety Report 24150259 (Version 1)
Quarter: 2024Q3

REPORT INFORMATION
  Report Type: Other
  Country: AU (occurrence: AU)
  Receive Date: 20240730
  Receipt Date: 20240730
  Transmission Date: 20241016
  Serious: Yes (Other)
  Sender: APPCO PHARMA
  Company Number: AU-Appco Pharma LLC-2159757

PATIENT
  Age: 71 Year
  Sex: Female

DRUGS (1)
  1. HYDROXYCHLOROQUINE SULFATE [Suspect]
     Active Substance: HYDROXYCHLOROQUINE SULFATE
     Indication: Subacute cutaneous lupus erythematosus
     Route: 048

REACTIONS (1)
  - Treatment failure [Unknown]
